FAERS Safety Report 24224308 (Version 3)
Quarter: 2024Q4

REPORT INFORMATION
  Report Type: Spontaneous
  Country: JP (occurrence: JP)
  Receive Date: 20240819
  Receipt Date: 20241219
  Transmission Date: 20250115
  Serious: Yes (Hospitalization, Disabling, Other)
  Sender: ROCHE
  Company Number: JP-CHUGAI-2024028544AA

PATIENT
  Age: 71 Year
  Sex: Female
  Weight: 39 kg

DRUGS (4)
  1. KADCYLA [Suspect]
     Active Substance: ADO-TRASTUZUMAB EMTANSINE
     Indication: Breast cancer
     Route: 042
     Dates: start: 20170719, end: 20191031
  2. KADCYLA [Suspect]
     Active Substance: ADO-TRASTUZUMAB EMTANSINE
     Route: 042
     Dates: start: 20200130, end: 20221117
  3. KADCYLA [Suspect]
     Active Substance: ADO-TRASTUZUMAB EMTANSINE
     Route: 042
     Dates: start: 20230511, end: 20240122
  4. ENHERTU [Suspect]
     Active Substance: FAM-TRASTUZUMAB DERUXTECAN-NXKI
     Indication: Product used for unknown indication
     Route: 065
     Dates: start: 20240219, end: 20240513

REACTIONS (6)
  - Ascites [Recovered/Resolved]
  - Varices oesophageal [Not Recovered/Not Resolved]
  - Portal hypertension [Recovering/Resolving]
  - Mobility decreased [Unknown]
  - Mesenteric haemorrhage [Unknown]
  - Liver disorder [Recovering/Resolving]

NARRATIVE: CASE EVENT DATE: 20240501
